FAERS Safety Report 7301462-2 (Version None)
Quarter: 2011Q1

REPORT INFORMATION
  Report Type: 
  Country: None (occurrence: None)
  Receive Date: 20110218
  Receipt Date: 20110206
  Transmission Date: 20110831
  Serious: Yes (Other)
  Sender: FDA-Public Use
  Company Number: FI-SANOFI-AVENTIS-2011SA006639

PATIENT
  Age: 69 Year
  Sex: Male
  Weight: 81.7 kg

DRUGS (4)
  1. BISOPROLOL [Concomitant]
     Indication: HYPERTENSION
     Route: 048
     Dates: start: 19920101
  2. MULTAQ [Suspect]
     Route: 048
     Dates: start: 20110101
  3. SPIRESIS [Concomitant]
     Indication: DIURETIC THERAPY
     Route: 048
     Dates: start: 20080101
  4. AMLODIPINE BESYLATE [Concomitant]
     Indication: HYPERTENSION
     Route: 048
     Dates: start: 20080101

REACTIONS (5)
  - HEART RATE INCREASED [None]
  - DIZZINESS [None]
  - ATRIAL FIBRILLATION [None]
  - HEART RATE DECREASED [None]
  - CHEST PAIN [None]
